FAERS Safety Report 7433985-X (Version None)
Quarter: 2011Q2

REPORT INFORMATION
  Report Type: 
  Country: None (occurrence: None)
  Receive Date: 20110420
  Receipt Date: 20110420
  Transmission Date: 20111010
  Serious: Yes (Life-Threatening)
  Sender: FDA-Public Use
  Company Number: None

PATIENT
  Age: 46 Year
  Sex: Female
  Weight: 111.1313 kg

DRUGS (1)
  1. NIASPAN [Suspect]
     Indication: BLOOD CHOLESTEROL ABNORMAL
     Dosage: 1 TABLET ONCE DAILY
     Dates: start: 20110417, end: 20110417

REACTIONS (16)
  - LOSS OF CONSCIOUSNESS [None]
  - EPISTAXIS [None]
  - FAECAL INCONTINENCE [None]
  - MOUTH HAEMORRHAGE [None]
  - FALL [None]
  - LOOSE TOOTH [None]
  - LIP INJURY [None]
  - SKIN BURNING SENSATION [None]
  - HEART RATE INCREASED [None]
  - DISORIENTATION [None]
  - PAIN [None]
  - SKIN TIGHTNESS [None]
  - MOVEMENT DISORDER [None]
  - FACE INJURY [None]
  - TERMINAL INSOMNIA [None]
  - CHILLS [None]
